FAERS Safety Report 5415753-3 (Version None)
Quarter: 2007Q3

REPORT INFORMATION
  Report Type: 
  Country: None (occurrence: None)
  Receive Date: 20070815
  Receipt Date: 20070804
  Transmission Date: 20080115
  Serious: Yes (Other)
  Sender: FDA-Public Use
  Company Number: US-PFIZER INC-2007026645

PATIENT
  Sex: Female
  Weight: 60.8 kg

DRUGS (6)
  1. CHANTIX [Suspect]
     Indication: SMOKING CESSATION THERAPY
     Dates: start: 20070227, end: 20070330
  2. CARTIA XT [Concomitant]
     Indication: BLOOD PRESSURE
  3. MULTIVITAMIN [Concomitant]
  4. TRAVATAN [Concomitant]
  5. SPIRIVA [Concomitant]
     Dosage: TEXT:7 PUFFS DAILY
  6. EFFEXOR XR [Concomitant]
     Dosage: DAILY DOSE:150MG

REACTIONS (11)
  - ADVERSE DRUG REACTION [None]
  - DERMATITIS [None]
  - EOSINOPHIL COUNT INCREASED [None]
  - HYPERSENSITIVITY [None]
  - MEAN CELL VOLUME INCREASED [None]
  - NAUSEA [None]
  - PRURITUS [None]
  - RASH [None]
  - SWELLING [None]
  - URTICARIA [None]
  - WEIGHT INCREASED [None]
